FAERS Safety Report 23187370 (Version 1)
Quarter: 2023Q4

REPORT INFORMATION
  Report Type: Report from Study
  Country: US (occurrence: US)
  Receive Date: 20231115
  Receipt Date: 20231115
  Transmission Date: 20240110
  Serious: Yes (Hospitalization)
  Sender: FDA-Public Use
  Company Number: US-BAYER-2023A158333

PATIENT
  Age: 62 Year
  Sex: Female
  Weight: 59.1 kg

DRUGS (5)
  1. COPANLISIB [Suspect]
     Active Substance: COPANLISIB
     Indication: Invasive ductal breast carcinoma
     Dosage: 60 MG-D1,15
     Route: 042
     Dates: start: 20230901, end: 20230901
  2. COPANLISIB [Suspect]
     Active Substance: COPANLISIB
     Indication: Neoplasm
     Dosage: 120 MG
     Route: 042
     Dates: start: 20230927, end: 20231011
  3. OLAPARIB [Suspect]
     Active Substance: OLAPARIB
     Indication: Invasive ductal breast carcinoma
     Dosage: 6000 MG
     Route: 048
     Dates: start: 20230901, end: 20230911
  4. OLAPARIB [Suspect]
     Active Substance: OLAPARIB
     Indication: Invasive ductal breast carcinoma
     Dosage: 4500 MG
     Dates: start: 20230927, end: 20231016
  5. DURVALUMAB [Suspect]
     Active Substance: DURVALUMAB
     Indication: Invasive ductal breast carcinoma

REACTIONS (4)
  - Chills [Recovering/Resolving]
  - Abdominal pain [Recovering/Resolving]
  - Pyrexia [Recovering/Resolving]
  - Pleural effusion [Recovering/Resolving]

NARRATIVE: CASE EVENT DATE: 20230911
